FAERS Safety Report 23521781 (Version 1)
Quarter: 2024Q1

REPORT INFORMATION
  Report Type: Spontaneous
  Country: FR (occurrence: FR)
  Receive Date: 20240214
  Receipt Date: 20240214
  Transmission Date: 20240409
  Serious: Yes (Hospitalization)
  Sender: FDA-Public Use
  Company Number: FR-B.Braun Medical Inc.-2153139

PATIENT
  Age: 33 Year
  Sex: Male

DRUGS (10)
  1. ACETAMINOPHEN [Suspect]
     Active Substance: ACETAMINOPHEN
     Route: 065
     Dates: start: 20231128
  2. FASTURTEC [Suspect]
     Active Substance: RASBURICASE
  3. CYTARABINE [Suspect]
     Active Substance: CYTARABINE
  4. METOCLOPRAMIDE [Suspect]
     Active Substance: METOCLOPRAMIDE
  5. TRAMADOL HYDROCHLORIDE [Suspect]
     Active Substance: TRAMADOL HYDROCHLORIDE
  6. PRIMPERAN [Suspect]
     Active Substance: METOCLOPRAMIDE HYDROCHLORIDE
  7. DAUNORUBICIN [Suspect]
     Active Substance: DAUNORUBICIN
  8. VALACYCLOVIR HYDROCHLORIDE [Suspect]
     Active Substance: VALACYCLOVIR HYDROCHLORIDE
  9. ONDANSETRON [Suspect]
     Active Substance: ONDANSETRON
  10. POSACONAZOLE [Suspect]
     Active Substance: POSACONAZOLE

REACTIONS (1)
  - Methaemoglobinaemia [Not Recovered/Not Resolved]
